FAERS Safety Report 5447431-9 (Version None)
Quarter: 2007Q3

REPORT INFORMATION
  Report Type: 
  Country: None (occurrence: None)
  Receive Date: 20070905
  Receipt Date: 20070820
  Transmission Date: 20080115
  Serious: Yes (Hospitalization, Other)
  Sender: FDA-Public Use
  Company Number: DSA_30497_2007

PATIENT
  Age: 8 Year
  Sex: Male
  Weight: 31 kg

DRUGS (5)
  1. ENALAPRIL MALEATE [Suspect]
     Indication: GLOMERULONEPHRITIS CHRONIC
     Dosage: (5 MG QD ORAL)
     Route: 048
     Dates: start: 20070326, end: 20070717
  2. LOSARTAN POTASSIUM [Suspect]
     Indication: GLOMERULONEPHRITIS CHRONIC
     Dosage: (25 MG QD ORAL)
     Route: 048
     Dates: start: 20070416, end: 20070717
  3. COMELIAN [Concomitant]
  4. ADONA [Concomitant]
  5. CINAL [Concomitant]

REACTIONS (5)
  - BETA 2 MICROGLOBULIN URINE INCREASED [None]
  - BLOOD UREA INCREASED [None]
  - GLUCOSE URINE PRESENT [None]
  - NEPHRITIS INTERSTITIAL [None]
  - OVERDOSE [None]
